FAERS Safety Report 5236010-4 (Version None)
Quarter: 2007Q1

REPORT INFORMATION
  Report Type: 
  Country: None (occurrence: None)
  Receive Date: 20061208
  Receipt Date: 20060627
  Transmission Date: 20070707
  Serious: Yes (Other)
  Sender: FDA-Public Use
  Company Number: 2006UW10224

PATIENT
  Age: 52 Year
  Sex: Female
  Weight: 88.904 kg

DRUGS (8)
  1. CRESTOR [Suspect]
     Indication: BLOOD CHOLESTEROL INCREASED
     Dates: end: 20060101
  2. CALCIUM [Concomitant]
  3. VITAMIN D [Concomitant]
  4. MULTI-VITAMINS [Concomitant]
  5. ASPIRIN [Concomitant]
  6. VITAMIN E [Concomitant]
  7. VITAMIN B6 [Concomitant]
  8. TRICOR [Concomitant]

REACTIONS (2)
  - URTICARIA [None]
  - WOUND SECRETION [None]
